FAERS Safety Report 5764671-X (Version None)
Quarter: 2008Q2

REPORT INFORMATION
  Report Type: 
  Country: None (occurrence: None)
  Receive Date: 20080611
  Receipt Date: 20080603
  Transmission Date: 20081010
  Serious: Yes (Other)
  Sender: FDA-Public Use
  Company Number: PHHY2008BR09998

PATIENT
  Sex: Male
  Weight: 25.1 kg

DRUGS (3)
  1. TEGRETOL [Suspect]
     Indication: PSYCHOMOTOR HYPERACTIVITY
     Dosage: 1 DF, TID
     Route: 048
  2. ANDANTOL [Concomitant]
  3. ULTRAPROCT [Concomitant]

REACTIONS (5)
  - ANAL PRURITUS [None]
  - APNOEA [None]
  - DISTURBANCE IN ATTENTION [None]
  - POOR QUALITY SLEEP [None]
  - SLEEP DISORDER [None]
